FAERS Safety Report 5123089-3 (Version None)
Quarter: 2006Q4

REPORT INFORMATION
  Report Type: 
  Country: None (occurrence: None)
  Receive Date: 20061004
  Receipt Date: 20061004
  Transmission Date: 20070319
  Serious: Yes (Hospitalization)
  Sender: FDA-Public Use
  Company Number: None

PATIENT
  Sex: Female
  Weight: 64.4108 kg

DRUGS (1)
  1. PROZAC [Suspect]
     Indication: FAMILY STRESS

REACTIONS (2)
  - FEAR [None]
  - SUICIDAL IDEATION [None]
